FAERS Safety Report 25378236 (Version 1)
Quarter: 2025Q2

REPORT INFORMATION
  Report Type: Spontaneous
  Country: US (occurrence: US)
  Receive Date: 20250530
  Receipt Date: 20250530
  Transmission Date: 20250716
  Serious: Yes (Life-Threatening, Hospitalization)
  Sender: PADAGIS
  Company Number: US-PADAGIS-2025PAD00605

PATIENT

DRUGS (6)
  1. CYCLOSPORINE [Suspect]
     Active Substance: CYCLOSPORINE
     Indication: Thymoma
     Route: 065
  2. CYCLOSPORINE [Suspect]
     Active Substance: CYCLOSPORINE
     Indication: Pure white cell aplasia
  3. GRANULOCYTE COLONY-STIMULATING FACTOR NOS [Suspect]
     Active Substance: GRANULOCYTE COLONY-STIMULATING FACTOR NOS
     Indication: Thymoma
     Route: 065
  4. GRANULOCYTE COLONY-STIMULATING FACTOR NOS [Suspect]
     Active Substance: GRANULOCYTE COLONY-STIMULATING FACTOR NOS
     Indication: Pure white cell aplasia
  5. FILGRASTIM [Suspect]
     Active Substance: FILGRASTIM
     Indication: Neutropenia
     Route: 065
  6. CIPROFLOXACIN [Concomitant]
     Active Substance: CIPROFLOXACIN
     Indication: Prophylaxis
     Route: 065

REACTIONS (6)
  - Distributive shock [Unknown]
  - Acidosis [Unknown]
  - Immune reconstitution inflammatory syndrome [Unknown]
  - Leukaemoid reaction [Unknown]
  - Alpha haemolytic streptococcal infection [Recovered/Resolved]
  - Product use in unapproved indication [Unknown]
